FAERS Safety Report 8315751-6 (Version None)
Quarter: 2012Q2

REPORT INFORMATION
  Report Type: 
  Country: None (occurrence: None)
  Receive Date: 20120426
  Receipt Date: 20120409
  Transmission Date: 20120825
  Serious: Yes (Other)
  Sender: FDA-Public Use
  Company Number: US-JNJFOC-20120405138

PATIENT
  Sex: Female
  Weight: 62.6 kg

DRUGS (2)
  1. PEPCID [Suspect]
     Indication: GASTRIC BYPASS
     Dosage: 2 PILLS AS NEEDED
     Route: 048
  2. PEPCID [Suspect]
     Indication: ULCER
     Dosage: 2 PILLS AS NEEDED
     Route: 048

REACTIONS (3)
  - GASTRIC DISORDER [None]
  - DRUG INEFFECTIVE [None]
  - PRODUCT QUALITY ISSUE [None]
